FAERS Safety Report 22390002 (Version 3)
Quarter: 2023Q2

REPORT INFORMATION
  Report Type: Spontaneous
  Country: US (occurrence: US)
  Receive Date: 20230531
  Receipt Date: 20230602
  Transmission Date: 20230721
  Serious: No
  Sender: FDA-Public Use
  Company Number: US-Dermavant-000637

PATIENT

DRUGS (2)
  1. TAPINAROF [Suspect]
     Active Substance: TAPINAROF
  2. SOTYKTU [Concomitant]
     Active Substance: DEUCRAVACITINIB

REACTIONS (2)
  - Arthralgia [Unknown]
  - Psoriasis [Unknown]
